FAERS Safety Report 6596864-6 (Version None)
Quarter: 2010Q1

REPORT INFORMATION
  Report Type: 
  Country: None (occurrence: None)
  Receive Date: 20100222
  Receipt Date: 20100222
  Transmission Date: 20100710
  Serious: Yes (Life-Threatening, Hospitalization, Other)
  Sender: FDA-Public Use
  Company Number: None

PATIENT
  Age: 40 Year
  Sex: Female
  Weight: 61.2356 kg

DRUGS (1)
  1. LEVAQUIN [Suspect]
     Indication: SINUSITIS
     Dates: start: 20091105, end: 20091111

REACTIONS (14)
  - BACK PAIN [None]
  - BURNING SENSATION [None]
  - COLOUR BLINDNESS [None]
  - CONVULSION [None]
  - DEPRESSION [None]
  - FATIGUE [None]
  - MALAISE [None]
  - MUSCULOSKELETAL PAIN [None]
  - MYALGIA [None]
  - OPTIC NERVE INJURY [None]
  - PARAESTHESIA [None]
  - SUICIDAL IDEATION [None]
  - VISION BLURRED [None]
  - VISUAL IMPAIRMENT [None]
